FAERS Safety Report 8060775-X (Version None)
Quarter: 2012Q1

REPORT INFORMATION
  Report Type: 
  Country: None (occurrence: None)
  Receive Date: 20120120
  Receipt Date: 20110111
  Transmission Date: 20120608
  Serious: No
  Sender: FDA-Public Use
  Company Number: US-ALLERGAN-1100347US

PATIENT
  Age: 88 Year
  Sex: Female

DRUGS (3)
  1. TIMOLOL MALEATE [Concomitant]
  2. DORZOLAMIDE [Concomitant]
     Dosage: UNK
  3. RESTASIS [Suspect]
     Indication: DRY EYE
     Dosage: 1 GTT, BID
     Dates: start: 20101001

REACTIONS (1)
  - INCREASED UPPER AIRWAY SECRETION [None]
